FAERS Safety Report 4474738-4 (Version None)
Quarter: 2004Q4

REPORT INFORMATION
  Report Type: 
  Country: None (occurrence: None)
  Receive Date: 20041012
  Receipt Date: 20040927
  Transmission Date: 20050328
  Serious: Yes (Hospitalization)
  Sender: FDA-Public Use
  Company Number: 2004231495JP

PATIENT
  Age: 51 Year
  Sex: Female
  Weight: 48 kg

DRUGS (6)
  1. FARMORUBICIN RTU (EPIRUBICIN HYDROCHLORIDE) SOLUTION, STERILE [Suspect]
     Indication: BREAST CANCER
     Dosage: 89 MG, QD, IV
     Route: 042
     Dates: start: 20040603, end: 20040806
  2. TAXOTERE [Suspect]
     Indication: BREAST CANCER
     Dosage: 89 MG, QD, IV
     Route: 042
     Dates: start: 20040603, end: 20040806
  3. KYTRIL [Concomitant]
  4. DECADRON [Concomitant]
  5. GASTER [Concomitant]
  6. PRIMPERAN INJ [Concomitant]

REACTIONS (3)
  - ALVEOLITIS ALLERGIC [None]
  - INTERSTITIAL LUNG DISEASE [None]
  - PHARYNX DISCOMFORT [None]
